FAERS Safety Report 6181042-5 (Version None)
Quarter: 2009Q2

REPORT INFORMATION
  Report Type: 
  Country: None (occurrence: None)
  Receive Date: 20090504
  Receipt Date: 20090504
  Transmission Date: 20091009
  Serious: Yes (Hospitalization)
  Sender: FDA-Public Use
  Company Number: None

PATIENT
  Sex: Male
  Weight: 34 kg

DRUGS (1)
  1. RUFINAMIDE  200MG  EISAI CO., LTD [Suspect]
     Indication: EPILEPSY
     Dosage: 600MG BID PO
     Route: 048
     Dates: start: 20090219, end: 20090421

REACTIONS (2)
  - CONDITION AGGRAVATED [None]
  - STATUS EPILEPTICUS [None]
